FAERS Safety Report 17392533 (Version 2)
Quarter: 2020Q1

REPORT INFORMATION
  Report Type: Spontaneous
  Country: RU (occurrence: RU)
  Receive Date: 20200207
  Receipt Date: 20200211
  Transmission Date: 20200409
  Serious: Yes (Death, Life-Threatening, Hospitalization)
  Sender: FDA-Public Use
  Company Number: NVSC2020RU031073

PATIENT
  Age: 75 Year
  Sex: Male
  Weight: 83 kg

DRUGS (12)
  1. CEFTRIAXONE. [Suspect]
     Active Substance: CEFTRIAXONE
     Indication: IMMUNODEFICIENCY
  2. CEFTRIAXONE. [Suspect]
     Active Substance: CEFTRIAXONE
     Indication: PYREXIA
     Dosage: UNK
     Route: 042
     Dates: start: 20190323
  3. AMOKSIKLAV [Suspect]
     Active Substance: AMOXICILLIN\CLAVULANATE POTASSIUM
     Indication: PYREXIA
     Dosage: UNK
     Route: 065
  4. AMIKACIN. [Suspect]
     Active Substance: AMIKACIN
     Indication: PYREXIA
     Dosage: UNK
     Route: 042
     Dates: start: 20190323
  5. CEFTRIAXONE. [Suspect]
     Active Substance: CEFTRIAXONE
     Indication: PANCYTOPENIA
  6. SULPERASON [Suspect]
     Active Substance: CEFOPERAZONE\SULBACTAM
     Indication: PYREXIA
     Dosage: 2 G, BID
     Route: 042
  7. AMOKSIKLAV [Suspect]
     Active Substance: AMOXICILLIN\CLAVULANATE POTASSIUM
     Indication: PANCYTOPENIA
  8. SULPERASON [Suspect]
     Active Substance: CEFOPERAZONE\SULBACTAM
     Indication: PANCYTOPENIA
  9. AMIKACIN. [Suspect]
     Active Substance: AMIKACIN
     Indication: PANCYTOPENIA
  10. SULPERASON [Suspect]
     Active Substance: CEFOPERAZONE\SULBACTAM
     Indication: IMMUNODEFICIENCY
  11. AMOKSIKLAV [Suspect]
     Active Substance: AMOXICILLIN\CLAVULANATE POTASSIUM
     Indication: IMMUNODEFICIENCY
  12. AMIKACIN. [Suspect]
     Active Substance: AMIKACIN
     Indication: IMMUNODEFICIENCY

REACTIONS (2)
  - Pseudomembranous colitis [Fatal]
  - Death [Fatal]

NARRATIVE: CASE EVENT DATE: 20190404
